FAERS Safety Report 4635092-8 (Version None)
Quarter: 2005Q2

REPORT INFORMATION
  Report Type: 
  Country: None (occurrence: None)
  Receive Date: 20050414
  Receipt Date: 20050406
  Transmission Date: 20051028
  Serious: Yes (Other)
  Sender: FDA-Public Use
  Company Number: PHBS2005IL04868

PATIENT
  Age: 19 Year
  Sex: Male

DRUGS (1)
  1. RITALIN-SR [Suspect]
     Indication: ATTENTION DEFICIT/HYPERACTIVITY DISORDER
     Dosage: 375 MG, ONCE/SINGLE
     Route: 048
     Dates: start: 20050331

REACTIONS (1)
  - BLOOD CREATINE PHOSPHOKINASE INCREASED [None]
